FAERS Safety Report 15326500 (Version 2)
Quarter: 2018Q3

REPORT INFORMATION
  Report Type: Spontaneous
  Country: CH (occurrence: CH)
  Receive Date: 20180828
  Receipt Date: 20180831
  Transmission Date: 20181010
  Serious: Yes (Other)
  Sender: FDA-Public Use
  Company Number: CH-GILEAD-2018-0356524

PATIENT
  Age: 42 Year
  Sex: Male

DRUGS (5)
  1. EPCLUSA [Suspect]
     Active Substance: SOFOSBUVIR\VELPATASVIR
     Indication: CHRONIC HEPATITIS C
     Dosage: UNK
     Route: 065
     Dates: start: 20171219, end: 20180316
  2. OLFEN                              /00372302/ [Concomitant]
     Active Substance: DICLOFENAC SODIUM
  3. ACIDUM FOLICUM [Concomitant]
     Active Substance: FOLIC ACID
  4. PREGABALIN. [Concomitant]
     Active Substance: PREGABALIN
  5. OXYCONTIN [Concomitant]
     Active Substance: OXYCODONE HYDROCHLORIDE

REACTIONS (6)
  - Asthenia [Unknown]
  - Hepatitis C [Unknown]
  - Drug ineffective [Unknown]
  - Multiple-drug resistance [Unknown]
  - Transaminases increased [Unknown]
  - Genotype drug resistance test positive [Unknown]
